FAERS Safety Report 19293323 (Version 1)
Quarter: 2021Q2

REPORT INFORMATION
  Report Type: Spontaneous
  Country: US (occurrence: US)
  Receive Date: 20210522
  Receipt Date: 20210522
  Transmission Date: 20210717
  Serious: Yes (Hospitalization)
  Sender: FDA-Public Use
  Company Number: None

PATIENT
  Age: 74 Year
  Sex: Female
  Weight: 62.6 kg

DRUGS (1)
  1. DURVALUMAB (MEDI4736) [Suspect]
     Active Substance: DURVALUMAB
     Dates: end: 20210428

REACTIONS (3)
  - Back pain [None]
  - Spinal decompression [None]
  - Paraesthesia [None]

NARRATIVE: CASE EVENT DATE: 20210509
